FAERS Safety Report 4494848-5 (Version None)
Quarter: 2004Q4

REPORT INFORMATION
  Report Type: 
  Country: None (occurrence: None)
  Receive Date: 20041103
  Receipt Date: 20041025
  Transmission Date: 20050328
  Serious: No
  Sender: FDA-Public Use
  Company Number: 2004-119068-NL

PATIENT
  Age: 78 Year
  Sex: Female

DRUGS (1)
  1. DANAPAROID SODIUM [Suspect]

REACTIONS (1)
  - DEEP VEIN THROMBOSIS [None]
